FAERS Safety Report 14675725 (Version 3)
Quarter: 2018Q2

REPORT INFORMATION
  Report Type: Report from Study
  Country: US (occurrence: US)
  Receive Date: 20180323
  Receipt Date: 20180517
  Transmission Date: 20180711
  Serious: No
  Sender: FDA-Public Use
  Company Number: PHEH2018US011207

PATIENT
  Sex: Female

DRUGS (5)
  1. COQ10 [Concomitant]
     Active Substance: UBIDECARENONE
     Indication: PRODUCT USED FOR UNKNOWN INDICATION
     Route: 065
  2. VOTRIENT [Suspect]
     Active Substance: PAZOPANIB HYDROCHLORIDE
     Dosage: 200 MG, UNK
     Route: 065
  3. CALCIUM [Concomitant]
     Active Substance: CALCIUM
     Indication: PRODUCT USED FOR UNKNOWN INDICATION
     Route: 065
  4. VITAMIN D3 [Concomitant]
     Active Substance: CHOLECALCIFEROL
     Indication: PRODUCT USED FOR UNKNOWN INDICATION
     Route: 065
  5. VOTRIENT [Suspect]
     Active Substance: PAZOPANIB HYDROCHLORIDE
     Indication: PRODUCT USED FOR UNKNOWN INDICATION
     Dosage: 400 MG, UNK
     Route: 065

REACTIONS (11)
  - Erythema [Unknown]
  - Dysphonia [Unknown]
  - Diarrhoea [Unknown]
  - Hair colour changes [Unknown]
  - Blood thyroid stimulating hormone increased [Unknown]
  - Blood pressure increased [Unknown]
  - Dizziness [Unknown]
  - Alopecia [Unknown]
  - Dry mouth [Unknown]
  - Stomatitis [Unknown]
  - Dysgeusia [Unknown]
